FAERS Safety Report 12849043 (Version 1)
Quarter: 2016Q4

REPORT INFORMATION
  Report Type: Spontaneous
  Country: US (occurrence: US)
  Receive Date: 20161014
  Receipt Date: 20161014
  Transmission Date: 20170207
  Serious: Yes (Other)
  Sender: FDA-Public Use
  Company Number: US-JNJFOC-20161008961

PATIENT
  Age: 4 Year

DRUGS (1)
  1. RISPERDAL [Suspect]
     Active Substance: RISPERIDONE
     Indication: PRODUCT USED FOR UNKNOWN INDICATION
     Dosage: INCREASE RISPERIDONE TO 3 TABLETS TAKEN 1.5 MG IN THE MORNING AND 2MG AT NIGHT
     Route: 048

REACTIONS (2)
  - Arnold-Chiari malformation [Unknown]
  - Encephalopathy [Unknown]

NARRATIVE: CASE EVENT DATE: 20070201
